FAERS Safety Report 10715842 (Version 1)
Quarter: 2015Q1

REPORT INFORMATION
  Report Type: Report from Study
  Country: US (occurrence: None)
  Receive Date: 20150109
  Receipt Date: 20150109
  Transmission Date: 20150721
  Serious: Yes (Hospitalization, Other)
  Sender: FDA-Public Use
  Company Number: 2014PROUSA04058

PATIENT
  Age: 75 Year
  Sex: Male
  Weight: 95.2 kg

DRUGS (14)
  1. ATORVASTATIN (ATORVASTATIN CALCIUM) [Concomitant]
  2. DICLOFENAC (DICLOFENAC SODIUM) [Concomitant]
  3. SYMBICORT [Concomitant]
     Active Substance: BUDESONIDE\FORMOTEROL FUMARATE DIHYDRATE
  4. LEVAQUIN [Concomitant]
     Active Substance: LEVOFLOXACIN
  5. ALISKIREN [Concomitant]
     Active Substance: ALISKIREN
  6. LORATADINE. [Concomitant]
     Active Substance: LORATADINE
  7. VITAMIN D (COLECALCIFEROL) [Concomitant]
  8. DILTIAZEM (DILTIAZEM HYDROCHLORIDE) [Concomitant]
  9. PREDNISONE (PREDNISONE ACETATE) [Concomitant]
  10. MOMETASONE FUROATE. [Concomitant]
     Active Substance: MOMETASONE FUROATE
  11. PROVENGE [Suspect]
     Active Substance: SIPULEUCEL-T
     Indication: PROSTATE CANCER METASTATIC
     Route: 042
     Dates: start: 20130613, end: 20130613
  12. ABIRATERONE [Concomitant]
     Active Substance: ABIRATERONE
  13. LEUPROLIDE [Concomitant]
     Active Substance: LEUPROLIDE
  14. LOSARTAN POTASSIUM. [Concomitant]
     Active Substance: LOSARTAN POTASSIUM

REACTIONS (1)
  - Transient ischaemic attack [None]

NARRATIVE: CASE EVENT DATE: 20140819
